FAERS Safety Report 4442110-9 (Version None)
Quarter: 2004Q3

REPORT INFORMATION
  Report Type: 
  Country: None (occurrence: None)
  Receive Date: 20040903
  Receipt Date: 20040707
  Transmission Date: 20050211
  Serious: No
  Sender: FDA-Public Use
  Company Number: 2004UW13404

PATIENT
  Age: 64 Year
  Sex: Female
  Weight: 94.3482 kg

DRUGS (4)
  1. CRESTOR [Suspect]
     Indication: HYPERLIPIDAEMIA
     Dosage: 10 MG PO
     Route: 048
     Dates: start: 20031101
  2. CRESTOR [Suspect]
     Indication: HYPERLIPIDAEMIA
     Dosage: 40 MG PO
     Route: 048
     Dates: end: 20040503
  3. ZYRTEC [Concomitant]
  4. ALLEGRA [Concomitant]

REACTIONS (2)
  - INSOMNIA [None]
  - MYALGIA [None]
